FAERS Safety Report 10351536 (Version 4)
Quarter: 2014Q3

REPORT INFORMATION
  Report Type: Spontaneous
  Country: FR (occurrence: FR)
  Receive Date: 20140730
  Receipt Date: 20140827
  Transmission Date: 20150326
  Serious: Yes (Disabling, Other)
  Sender: FDA-Public Use
  Company Number: FR-PFIZER INC-2014209303

PATIENT
  Age: 71 Year
  Sex: Male
  Weight: 75 kg

DRUGS (6)
  1. KARDEGIC [Concomitant]
     Active Substance: ASPIRIN LYSINE
     Indication: CORONARY ARTERY BYPASS
     Dosage: 160 MG, 1X/DAY
     Route: 048
     Dates: start: 1995
  2. VIAGRA [Suspect]
     Active Substance: SILDENAFIL CITRATE
     Indication: ERECTILE DYSFUNCTION
     Dosage: 50 MG, EVERY 2 TO 3 WEEKS
     Dates: start: 20100101
  3. INEGY [Concomitant]
     Active Substance: EZETIMIBE\SIMVASTATIN
     Indication: CORONARY ARTERY BYPASS
     Dosage: 10MG/40 MG ONCE A DAY
     Route: 048
     Dates: start: 1995
  4. COVERSYL [Concomitant]
     Active Substance: PERINDOPRIL
     Indication: CORONARY ARTERY BYPASS
     Dosage: 10 MG, 1X/DAY
     Route: 048
     Dates: start: 1995
  5. OMEXEL [Concomitant]
     Active Substance: TAMSULOSIN HYDROCHLORIDE
     Indication: CORONARY ARTERY BYPASS
     Dosage: 0.4 MG, 1X/DAY
     Route: 048
     Dates: start: 20110707, end: 20140725
  6. TENORMIN [Concomitant]
     Active Substance: ATENOLOL
     Indication: CORONARY ARTERY BYPASS
     Dosage: 50 MG, 1X/DAY
     Route: 048
     Dates: start: 1995

REACTIONS (6)
  - Head discomfort [Recovered/Resolved]
  - Optic neuritis [Recovered/Resolved]
  - Extraocular muscle paresis [Unknown]
  - Muscle injury [Unknown]
  - Eye pain [Recovered/Resolved]
  - Diplopia [Recovered/Resolved]

NARRATIVE: CASE EVENT DATE: 20140417
